FAERS Safety Report 5558010-7 (Version None)
Quarter: 2007Q4

REPORT INFORMATION
  Report Type: 
  Country: None (occurrence: None)
  Receive Date: 20071214
  Receipt Date: 20071128
  Transmission Date: 20080405
  Serious: Yes (Death, Hospitalization)
  Sender: FDA-Public Use
  Company Number: US-RANBAXY-2007US-11556

PATIENT

DRUGS (7)
  1. ACYCLOVIR [Suspect]
     Indication: HERPES ZOSTER
     Dosage: UNK, 5 X DAILY
     Route: 048
     Dates: start: 20070501, end: 20070517
  2. FUROSEMIDE [Concomitant]
     Indication: HEPATIC FAILURE
  3. SPIRONOLACTONE [Concomitant]
     Indication: HEPATIC FAILURE
  4. LEXAPRO [Concomitant]
     Indication: DEPRESSION
  5. ULTRAM [Concomitant]
     Indication: PAIN IN EXTREMITY
  6. POTASSIUM CHLORIDE [Concomitant]
     Indication: DRUG USE FOR UNKNOWN INDICATION
  7. CAPSAICIN OINTMENT [Concomitant]
     Indication: HERPES ZOSTER
     Route: 061

REACTIONS (8)
  - CONFUSIONAL STATE [None]
  - DEATH [None]
  - DYSKINESIA [None]
  - FATIGUE [None]
  - HALLUCINATION [None]
  - MOUTH HAEMORRHAGE [None]
  - SOMNOLENCE [None]
  - TREMOR [None]
